FAERS Safety Report 13939040 (Version 1)
Quarter: 2017Q3

REPORT INFORMATION
  Report Type: Spontaneous
  Country: US (occurrence: US)
  Receive Date: 20170906
  Receipt Date: 20170906
  Transmission Date: 20171127
  Serious: Yes (Other)
  Sender: FDA-Public Use
  Company Number: US-AMGEN-USASP2017132582

PATIENT
  Age: 75 Year
  Sex: Male

DRUGS (1)
  1. PROLIA [Suspect]
     Active Substance: DENOSUMAB
     Indication: OSTEOPOROSIS
     Dosage: 60 MG, Q6MO
     Route: 065
     Dates: start: 2016

REACTIONS (7)
  - Overweight [Unknown]
  - Spinal operation [Unknown]
  - Wheelchair user [Unknown]
  - Mobility decreased [Unknown]
  - Back injury [Unknown]
  - Tibia fracture [Unknown]
  - Living in residential institution [Unknown]

NARRATIVE: CASE EVENT DATE: 20170316
